FAERS Safety Report 9029317 (Version 2)
Quarter: 2013Q1

REPORT INFORMATION
  Report Type: Spontaneous
  Country: US (occurrence: US)
  Receive Date: 20130124
  Receipt Date: 20130131
  Transmission Date: 20140127
  Serious: Yes (Other)
  Sender: FDA-Public Use
  Company Number: US-PFIZER INC-2013030180

PATIENT
  Age: 56 Year
  Sex: Female

DRUGS (15)
  1. NEURONTIN [Suspect]
     Dosage: 600 MG, 2X/DAY
  2. ALPRAZOLAM [Concomitant]
     Dosage: UNK
  3. AMITRIPTYLINE [Concomitant]
     Dosage: UNK
  4. ASMANEX TWISTHALER [Concomitant]
     Dosage: UNK
  5. BELLADONNA AND DERIVATIVES [Concomitant]
     Dosage: UNK
  6. CYCLOBENZAPRINE [Concomitant]
     Dosage: UNK
  7. DOMPERIDONE [Concomitant]
     Dosage: UNK
  8. ENABLEX [Concomitant]
     Dosage: UNK
  9. GLIMEPIRIDE [Concomitant]
     Dosage: UNK
  10. HYDROCHLOROTHIAZIDE/LOSARTAN [Concomitant]
     Dosage: UNK
  11. OMEPRAZOLE [Concomitant]
     Dosage: UNK
  12. PLAVIX [Concomitant]
     Dosage: UNK
  13. TRIMETHOPRIM [Concomitant]
     Dosage: UNK
  14. VERAPAMIL [Concomitant]
     Dosage: UNK
  15. ZOLPIDEM [Concomitant]
     Dosage: UNK

REACTIONS (6)
  - Surgery [Unknown]
  - Eye infection [Unknown]
  - Gastrointestinal disorder [Unknown]
  - Eye disorder [Unknown]
  - Tooth disorder [Unknown]
  - Inappropriate schedule of drug administration [Unknown]
